FAERS Safety Report 9913386 (Version 1)
Quarter: 2014Q1

REPORT INFORMATION
  Report Type: Spontaneous
  Country: US (occurrence: None)
  Receive Date: 20140218
  Receipt Date: 20140218
  Transmission Date: 20141002
  Serious: Yes (Other)
  Sender: FDA-Public Use
  Company Number: None

PATIENT
  Age: 68 Year
  Sex: Female
  Weight: 63.5 kg

DRUGS (5)
  1. WELCHOL [Suspect]
     Indication: BLOOD CHOLESTEROL ABNORMAL
     Dosage: ONE-HALF PILL?QD?ORAL
     Route: 048
     Dates: start: 20131220, end: 20140131
  2. SYNTHROID [Concomitant]
  3. RALOXIFENE [Concomitant]
  4. NEXIUM [Concomitant]
  5. IMDERAL LA [Concomitant]

REACTIONS (2)
  - Blood thyroid stimulating hormone increased [None]
  - Hot flush [None]
